FAERS Safety Report 8661917 (Version 7)
Quarter: 2014Q3

REPORT INFORMATION
  Report Type: Spontaneous
  Country: US (occurrence: US)
  Receive Date: 20120712
  Receipt Date: 20140902
  Transmission Date: 20150326
  Serious: Yes (Other)
  Sender: FDA-Public Use
  Company Number: US-ASTRAZENECA-2012SE45736

PATIENT
  Age: 64 Year
  Sex: Female
  Weight: 59 kg

DRUGS (15)
  1. NEXIUM [Suspect]
     Active Substance: ESOMEPRAZOLE MAGNESIUM
     Indication: DYSPEPSIA
     Route: 048
  2. XANAX [Concomitant]
     Active Substance: ALPRAZOLAM
     Route: 048
  3. NEXIUM [Suspect]
     Active Substance: ESOMEPRAZOLE MAGNESIUM
     Indication: GASTROOESOPHAGEAL REFLUX DISEASE
     Route: 048
     Dates: start: 2009
  4. CRESTOR [Suspect]
     Active Substance: ROSUVASTATIN CALCIUM
     Indication: BLOOD CHOLESTEROL INCREASED
     Route: 048
     Dates: start: 2009
  5. KLOR CON [Concomitant]
     Indication: ELECTROLYTE SUBSTITUTION THERAPY
     Route: 048
  6. TUMS [Concomitant]
     Active Substance: CALCIUM CARBONATE
  7. LISINOPRIL. [Suspect]
     Active Substance: LISINOPRIL
     Indication: HYPERTENSION
     Dosage: 20-25 MG DAILY
     Route: 048
  8. TEGRETOL [Concomitant]
     Active Substance: CARBAMAZEPINE
     Indication: TRIGEMINAL NEURALGIA
     Dosage: UP TO 800MG OR 900MG DAILY
     Route: 048
  9. TYLENOL WITH CODEINE [Concomitant]
     Active Substance: ACETAMINOPHEN\CODEINE PHOSPHATE
     Indication: PAIN
     Dosage: 300-30 MG, 1-2, 4 TIMES PER DAY (PRN)
     Route: 048
  10. NEXIUM [Suspect]
     Active Substance: ESOMEPRAZOLE MAGNESIUM
     Indication: GASTROOESOPHAGEAL REFLUX DISEASE
     Route: 048
  11. AMBIEN [Concomitant]
     Active Substance: ZOLPIDEM TARTRATE
  12. SERTRALINE [Concomitant]
     Active Substance: SERTRALINE HYDROCHLORIDE
     Route: 048
     Dates: start: 2009
  13. ASCOMP CODEINE [Concomitant]
     Indication: MIGRAINE
     Dosage: 2-3 PILLS PRN
     Route: 048
  14. NEXIUM [Suspect]
     Active Substance: ESOMEPRAZOLE MAGNESIUM
     Indication: DYSPEPSIA
     Route: 048
     Dates: start: 2009
  15. HYDROCODONE ACETAMINOPHEN [Concomitant]
     Active Substance: ACETAMINOPHEN\HYDROCODONE BITARTRATE
     Indication: TRIGEMINAL NEURALGIA
     Dosage: 5-325 MG

REACTIONS (24)
  - Contusion [Unknown]
  - Fall [Unknown]
  - Eructation [Unknown]
  - Malaise [Unknown]
  - Upper limb fracture [Unknown]
  - Humerus fracture [Unknown]
  - Aphagia [Unknown]
  - Ligament sprain [Unknown]
  - Body height decreased [Unknown]
  - Hypercholesterolaemia [Unknown]
  - Gastrooesophageal reflux disease [Unknown]
  - Dyspepsia [Unknown]
  - Migraine [Unknown]
  - Eructation [Unknown]
  - Off label use [Unknown]
  - Drug dose omission [Unknown]
  - Rib fracture [Unknown]
  - Upper limb fracture [Unknown]
  - Hypertension [Unknown]
  - Sinusitis [Unknown]
  - Trigeminal neuralgia [Unknown]
  - Memory impairment [Unknown]
  - Blood potassium decreased [Unknown]
  - Burning sensation [Unknown]

NARRATIVE: CASE EVENT DATE: 2009
